FAERS Safety Report 9717139 (Version 1)
Quarter: 2013Q4

REPORT INFORMATION
  Report Type: Spontaneous
  Country: US (occurrence: US)
  Receive Date: 20131127
  Receipt Date: 20131127
  Transmission Date: 20140711
  Serious: Yes (Other)
  Sender: FDA-Public Use
  Company Number: US-PFIZER INC-2013338267

PATIENT
  Sex: Male

DRUGS (1)
  1. AVINZA [Suspect]
     Dosage: 120 MG, UNK
     Dates: end: 2013

REACTIONS (2)
  - Back disorder [Unknown]
  - Pain [Unknown]
